FAERS Safety Report 24192298 (Version 7)
Quarter: 2024Q4

REPORT INFORMATION
  Report Type: Spontaneous
  Country: US (occurrence: US)
  Receive Date: 20240809
  Receipt Date: 20241230
  Transmission Date: 20250114
  Serious: Yes (Other)
  Sender: AMGEN
  Company Number: US-AMGEN-USASP2024154967

PATIENT
  Sex: Female

DRUGS (1)
  1. TEPEZZA [Suspect]
     Active Substance: TEPROTUMUMAB-TRBW
     Indication: Product used for unknown indication
     Dosage: UNK
     Route: 042
     Dates: end: 2024

REACTIONS (6)
  - Eyelid operation [Unknown]
  - Vein rupture [Unknown]
  - Drug ineffective [Unknown]
  - Illness [Recovered/Resolved]
  - Muscle spasms [Not Recovered/Not Resolved]
  - Surgery [Unknown]
